FAERS Safety Report 16339103 (Version 3)
Quarter: 2019Q2

REPORT INFORMATION
  Report Type: Report from Study
  Country: US (occurrence: US)
  Receive Date: 20190521
  Receipt Date: 20190527
  Transmission Date: 20190711
  Serious: Yes (Death)
  Sender: FDA-Public Use
  Company Number: US-PFIZER INC-2019212774

PATIENT
  Age: 11 Year

DRUGS (2)
  1. AZITHROMYCIN ANHYDROUS. [Suspect]
     Active Substance: AZITHROMYCIN ANHYDROUS
     Dosage: UNK
  2. CHLORPHENIRAMINE;HYDROCODONE [Interacting]
     Active Substance: CHLORPHENIRAMINE\HYDROCODONE
     Indication: COUGH
     Dosage: 2 ML, UNK

REACTIONS (4)
  - Drug level increased [Fatal]
  - Pericarditis [Fatal]
  - Drug interaction [Fatal]
  - Arrhythmia [Fatal]
